FAERS Safety Report 14998828 (Version 1)
Quarter: 2018Q2

REPORT INFORMATION
  Report Type: Spontaneous
  Country: US (occurrence: US)
  Receive Date: 20180612
  Receipt Date: 20180612
  Transmission Date: 20180711
  Serious: Yes (Other)
  Sender: FDA-Public Use
  Company Number: US-ROCHE-2137151

PATIENT
  Age: 38 Year
  Sex: Female

DRUGS (2)
  1. BOTOX [Concomitant]
     Active Substance: ONABOTULINUMTOXINA
     Dosage: 200 UNITS
     Route: 030
     Dates: start: 20170731
  2. XOLAIR [Suspect]
     Active Substance: OMALIZUMAB
     Indication: URTICARIA
     Route: 058
     Dates: start: 20170530

REACTIONS (6)
  - Migraine [Unknown]
  - Road traffic accident [Unknown]
  - Post-traumatic neck syndrome [Unknown]
  - Concussion [Unknown]
  - Tendon disorder [Unknown]
  - Muscle strain [Unknown]

NARRATIVE: CASE EVENT DATE: 20180427
